FAERS Safety Report 21921009 (Version 3)
Quarter: 2023Q1

REPORT INFORMATION
  Report Type: Report from Study
  Country: DE (occurrence: DE)
  Receive Date: 20230127
  Receipt Date: 20230322
  Transmission Date: 20230418
  Serious: Yes (Hospitalization)
  Sender: FDA-Public Use
  Company Number: DE-PFIZER INC-PV202300013894

PATIENT
  Age: 45 Year
  Sex: Male
  Weight: 79 kg

DRUGS (4)
  1. GEMTUZUMAB OZOGAMICIN [Suspect]
     Active Substance: GEMTUZUMAB OZOGAMICIN
     Dosage: 4.5 MG
     Route: 042
     Dates: start: 20221224
  2. MIDOSTAURIN [Suspect]
     Active Substance: MIDOSTAURIN
     Dosage: 1000 MG
     Route: 048
     Dates: start: 20221231
  3. CYTARABINE [Concomitant]
     Active Substance: CYTARABINE
     Dosage: 400 MG
     Dates: start: 20221224
  4. DAUNORUBICIN [Concomitant]
     Active Substance: DAUNORUBICIN
     Dosage: 120 MG
     Dates: start: 20221224

REACTIONS (1)
  - Large intestine perforation [Recovering/Resolving]

NARRATIVE: CASE EVENT DATE: 20230115
